FAERS Safety Report 13454714 (Version 1)
Quarter: 2017Q2

REPORT INFORMATION
  Report Type: Spontaneous
  Country: US (occurrence: US)
  Receive Date: 20170418
  Receipt Date: 20170418
  Transmission Date: 20170830
  Serious: No
  Sender: FDA-Public Use
  Company Number: None

PATIENT
  Age: 40 Year
  Sex: Female

DRUGS (1)
  1. HUMIRA [Suspect]
     Active Substance: ADALIMUMAB
     Indication: PRODUCT USED FOR UNKNOWN INDICATION
     Route: 058
     Dates: start: 20161027, end: 201703

REACTIONS (6)
  - Product formulation issue [None]
  - Urticaria [None]
  - Pain [None]
  - Pruritus [None]
  - Hypersensitivity [None]
  - Swelling [None]

NARRATIVE: CASE EVENT DATE: 20170314
